FAERS Safety Report 4830108-8 (Version None)
Quarter: 2005Q4

REPORT INFORMATION
  Report Type: 
  Country: None (occurrence: None)
  Receive Date: 20051117
  Receipt Date: 20050622
  Transmission Date: 20060501
  Serious: Yes (Hospitalization)
  Sender: FDA-Public Use
  Company Number: 2005AP03507

PATIENT
  Age: 29183 Day
  Sex: Female
  Weight: 47 kg

DRUGS (14)
  1. IRESSA [Suspect]
     Indication: NON-SMALL CELL LUNG CANCER RECURRENT
     Route: 048
     Dates: start: 20050531, end: 20050617
  2. LOXONIN [Concomitant]
     Indication: ARTHRALGIA
     Route: 048
     Dates: start: 20050401
  3. SELBEX [Concomitant]
     Indication: GASTRIC ULCER
     Route: 048
     Dates: start: 20050401
  4. PARIET [Concomitant]
     Indication: GASTRIC ULCER
     Route: 048
     Dates: start: 20050412
  5. ADALAT [Concomitant]
     Indication: HYPERTENSION
     Route: 048
     Dates: start: 20050416
  6. MUCOSTA [Concomitant]
     Indication: GASTRIC ULCER
     Route: 048
     Dates: start: 20050419
  7. NU-LOTAN [Concomitant]
     Indication: HYPERTENSION
     Route: 048
     Dates: start: 20050421
  8. MOHRUS TAPE [Concomitant]
     Indication: BACK PAIN
     Dates: start: 20050425
  9. MEVALOTIN [Concomitant]
     Indication: HYPERLIPIDAEMIA
     Route: 048
     Dates: start: 20050426
  10. RESTAMIN [Concomitant]
     Dates: start: 20050427
  11. CYANOCOBALAMIN [Concomitant]
     Indication: HYPOAESTHESIA
     Route: 048
     Dates: start: 20050506
  12. HALCION [Concomitant]
     Indication: INSOMNIA
     Route: 048
     Dates: start: 20050511
  13. INNOLET [Concomitant]
     Indication: DIABETES MELLITUS
     Route: 058
     Dates: start: 20050528
  14. DEXALTIN [Concomitant]
     Indication: STOMATITIS
     Dates: start: 20050607

REACTIONS (10)
  - BLOOD GLUCOSE INCREASED [None]
  - BLOOD PRESSURE SYSTOLIC INCREASED [None]
  - CEREBRAL INFARCTION [None]
  - HEMIPLEGIA [None]
  - MALIGNANT NEOPLASM PROGRESSION [None]
  - METASTASES TO LUNG [None]
  - NON-SMALL CELL LUNG CANCER [None]
  - RASH [None]
  - RESPIRATORY FAILURE [None]
  - TONGUE DISORDER [None]
